FAERS Safety Report 22103679 (Version 1)
Quarter: 2023Q1

REPORT INFORMATION
  Report Type: Spontaneous
  Country: US (occurrence: US)
  Receive Date: 20230316
  Receipt Date: 20230316
  Transmission Date: 20230418
  Serious: Yes (Other)
  Sender: FDA-Public Use
  Company Number: US-PFIZER INC-202300110099

PATIENT
  Age: 83 Year
  Sex: Female

DRUGS (1)
  1. PAXLOVID [Suspect]
     Active Substance: NIRMATRELVIR\RITONAVIR
     Indication: COVID-19 treatment
     Dosage: UNK
     Dates: start: 20230306, end: 20230313

REACTIONS (12)
  - Neuropathy peripheral [Unknown]
  - Pain [Unknown]
  - Anxiety [Unknown]
  - Cough [Unknown]
  - Drug hypersensitivity [Unknown]
  - Pollakiuria [Unknown]
  - Fatigue [Unknown]
  - Feeling abnormal [Unknown]
  - Sneezing [Unknown]
  - Dysgeusia [Unknown]
  - Abdominal discomfort [Unknown]
  - Incorrect product administration duration [Unknown]

NARRATIVE: CASE EVENT DATE: 20230301
